FAERS Safety Report 18695180 (Version 1)
Quarter: 2021Q1

REPORT INFORMATION
  Report Type: Spontaneous
  Country: CA (occurrence: CA)
  Receive Date: 20210104
  Receipt Date: 20210104
  Transmission Date: 20210419
  Serious: Yes (Life-Threatening, Hospitalization)
  Sender: FDA-Public Use
  Company Number: CA-PFIZER INC-2020517351

PATIENT
  Age: 72 Year
  Sex: Male

DRUGS (12)
  1. ETOPOSIDE. [Suspect]
     Active Substance: ETOPOSIDE
     Dosage: UNK
  2. OLANZAPINE. [Concomitant]
     Active Substance: OLANZAPINE
     Dosage: UNK
  3. BUSPIRONE [Concomitant]
     Active Substance: BUSPIRONE HYDROCHLORIDE
     Dosage: UNK
  4. DILAUDID [Concomitant]
     Active Substance: HYDROMORPHONE HYDROCHLORIDE
     Dosage: UNK
  5. NAPROXEN. [Concomitant]
     Active Substance: NAPROXEN
     Dosage: UNK
  6. PROCHLORPERAZINE. [Concomitant]
     Active Substance: PROCHLORPERAZINE
     Dosage: UNK
  7. PREDNISONE. [Concomitant]
     Active Substance: PREDNISONE
     Dosage: UNK
  8. CARBOPLATIN. [Suspect]
     Active Substance: CARBOPLATIN
     Dosage: UNK
  9. BENADRYL [Concomitant]
     Active Substance: DIPHENHYDRAMINE HYDROCHLORIDE
     Dosage: UNK
  10. FLOMAX [Concomitant]
     Active Substance: TAMSULOSIN HYDROCHLORIDE
     Dosage: UNK
  11. OXYCODONE AND ACETAMINOPHEN [Concomitant]
     Active Substance: ACETAMINOPHEN\OXYCODONE HYDROCHLORIDE
  12. ZOFRAN [Concomitant]
     Active Substance: ONDANSETRON HYDROCHLORIDE
     Dosage: UNK

REACTIONS (1)
  - Cardiac disorder [Unknown]
